FAERS Safety Report 20871964 (Version 1)
Quarter: 2022Q2

REPORT INFORMATION
  Report Type: Spontaneous
  Country: FR (occurrence: FR)
  Receive Date: 20220525
  Receipt Date: 20220525
  Transmission Date: 20220720
  Serious: Yes (Other)
  Sender: FDA-Public Use
  Company Number: FR-PFIZER INC-202200725777

PATIENT
  Age: 4 Decade
  Sex: Female
  Weight: 112 kg

DRUGS (1)
  1. METHOTREXATE SODIUM [Suspect]
     Active Substance: METHOTREXATE SODIUM
     Indication: Benign familial pemphigus
     Dosage: 20 MG, WEEKLY

REACTIONS (2)
  - Staphylococcal infection [Recovered/Resolved]
  - Drug ineffective [Unknown]
